FAERS Safety Report 18331248 (Version 2)
Quarter: 2020Q4

REPORT INFORMATION
  Report Type: Spontaneous
  Country: IT (occurrence: IT)
  Receive Date: 20200930
  Receipt Date: 20201015
  Transmission Date: 20210113
  Serious: Yes (Hospitalization, Other)
  Sender: FDA-Public Use
  Company Number: IT-MYLANLABS-2020M1082815

PATIENT
  Age: 43 Year
  Sex: Female

DRUGS (13)
  1. INDOMETHACIN                       /00003801/ [Suspect]
     Active Substance: INDOMETHACIN
     Dosage: UNK
  2. OXYCODONE AND ACETAMINOPHEN [Suspect]
     Active Substance: ACETAMINOPHEN\OXYCODONE HYDROCHLORIDE
     Dosage: UNK(STARTED AT THE AGE OF 27 YEARS)
     Route: 065
  3. TOPIRAMATE. [Suspect]
     Active Substance: TOPIRAMATE
     Indication: HEADACHE
     Dosage: UNK(STARTED AT THE AGE OF 27 YEARS)
     Route: 065
  4. FENTANYL. [Suspect]
     Active Substance: FENTANYL
     Indication: HEADACHE
     Dosage: UNK(STARTED AT THE AGE OF 40-43 YEARS)
     Route: 065
  5. OXYCODONE AND ACETAMINOPHEN [Suspect]
     Active Substance: ACETAMINOPHEN\OXYCODONE HYDROCHLORIDE
     Indication: HEADACHE
     Dosage: UNK UNK, QD(STARTED AT THE AGE OF 35 YEARS; UP TO 40 TABLETS PER DAY)
     Route: 065
  6. NOVALGINA [Suspect]
     Active Substance: METAMIZOLE SODIUM
     Indication: HEADACHE
     Dosage: UNK(STARTED AT THE AGE OF 4 YEARS)
     Route: 065
  7. METAMIZOLE [Suspect]
     Active Substance: METAMIZOLE
     Indication: HEADACHE
     Dosage: UNK
  8. PARACETAMOL/CODEINE [Suspect]
     Active Substance: ACETAMINOPHEN\CODEINE PHOSPHATE
     Indication: HEADACHE
     Dosage: UNK(STARTED AT THE AGE OF 27 YEARS)
     Route: 065
  9. INDOMETACIN MEGLUMINE [Suspect]
     Active Substance: INDOMETACIN MEGLUMINE
     Indication: HEADACHE
     Dosage: UNK
     Route: 030
  10. PARACETAMOL/CODEINE [Suspect]
     Active Substance: ACETAMINOPHEN\CODEINE PHOSPHATE
     Dosage: UNK UNK, QD(STARTED AT THE AGE OF 33-34 YEARS; UP TO 20 TABLETS PER DAY)
     Route: 065
  11. MORPHINE [Suspect]
     Active Substance: MORPHINE
     Indication: HEADACHE
     Dosage: UNK(DRIP; STARTED AT THE AGE OF 20 YEARS)
     Route: 065
  12. MORPHINE [Suspect]
     Active Substance: MORPHINE
     Dosage: UNK(STARTED AT THE AGE OF 33-34 YEARS)
     Route: 065
  13. INDOMETHACIN                       /00003801/ [Suspect]
     Active Substance: INDOMETHACIN
     Indication: HEADACHE
     Dosage: UNK(STARTED AT THE AGE OF 20 YEARS)
     Route: 065

REACTIONS (6)
  - Drug abuse [Recovered/Resolved]
  - Gastric ulcer [Unknown]
  - Gastroduodenal ulcer [Unknown]
  - Gastric haemorrhage [Unknown]
  - Intentional overdose [Unknown]
  - Intentional product misuse [Unknown]
